FAERS Safety Report 25521395 (Version 2)
Quarter: 2025Q3

REPORT INFORMATION
  Report Type: Spontaneous
  Country: US (occurrence: US)
  Receive Date: 20250706
  Receipt Date: 20250707
  Transmission Date: 20251020
  Serious: Yes (Other)
  Sender: MERCK SHARP & DOHME LLC
  Company Number: US-009507513-2303300

PATIENT
  Age: 66 Year
  Sex: Male

DRUGS (3)
  1. PREVYMIS [Suspect]
     Active Substance: LETERMOVIR
     Dates: start: 202402
  2. RAPAMUNE [Concomitant]
     Active Substance: SIROLIMUS
     Dates: start: 201705
  3. CELLCEPT [Concomitant]
     Active Substance: MYCOPHENOLATE MOFETIL
     Dates: start: 20160223

REACTIONS (14)
  - Type 2 diabetes mellitus [Unknown]
  - Hypertension [Unknown]
  - Micturition urgency [Unknown]
  - Feeling hot [Unknown]
  - Oedema peripheral [Unknown]
  - Product use in unapproved indication [Unknown]
  - Liver operation [Unknown]
  - Wound dehiscence [Recovered/Resolved]
  - Abscess [Unknown]
  - Diastolic dysfunction [Unknown]
  - Chronic kidney disease [Unknown]
  - Polycythaemia [Unknown]
  - High density lipoprotein decreased [Unknown]
  - Blood triglycerides increased [Unknown]

NARRATIVE: CASE EVENT DATE: 20240201
